FAERS Safety Report 5691001-4 (Version None)
Quarter: 2008Q2

REPORT INFORMATION
  Report Type: 
  Country: None (occurrence: None)
  Receive Date: 20080401
  Receipt Date: 20080324
  Transmission Date: 20081010
  Serious: Yes (Disabling)
  Sender: FDA-Public Use
  Company Number: JP-PFIZER INC-2008019002

PATIENT
  Sex: Female
  Weight: 62 kg

DRUGS (2)
  1. LIPITOR [Suspect]
     Indication: HYPERCHOLESTEROLAEMIA
     Route: 048
     Dates: start: 20071121, end: 20080222
  2. ATELEC [Suspect]
     Indication: HYPERTENSION
     Route: 048
     Dates: start: 20071121, end: 20080222

REACTIONS (1)
  - ANOSMIA [None]
